FAERS Safety Report 7012962-7 (Version None)
Quarter: 2010Q3

REPORT INFORMATION
  Report Type: 
  Country: None (occurrence: None)
  Receive Date: 20100924
  Receipt Date: 20100915
  Transmission Date: 20110219
  Serious: Yes (Other)
  Sender: FDA-Public Use
  Company Number: US-JNJFOC-20100905629

PATIENT
  Sex: Female
  Weight: 97.52 kg

DRUGS (4)
  1. REMICADE [Suspect]
     Indication: CROHN'S DISEASE
     Route: 042
  2. ASACOL [Concomitant]
  3. PREVACID [Concomitant]
  4. SYNTHROID [Concomitant]

REACTIONS (1)
  - BREAST CANCER [None]
